FAERS Safety Report 15950287 (Version 2)
Quarter: 2020Q1

REPORT INFORMATION
  Report Type: Spontaneous
  Country: FR (occurrence: FR)
  Receive Date: 20190211
  Receipt Date: 20200213
  Transmission Date: 20200409
  Serious: Yes (Life-Threatening, Hospitalization)
  Sender: FDA-Public Use
  Company Number: FR-OTSUKA-2019_003657

PATIENT
  Age: 73 Year
  Sex: Female

DRUGS (6)
  1. ABILIFY [Suspect]
     Active Substance: ARIPIPRAZOLE
     Indication: ANXIETY
     Dosage: 1 DF, QD
     Route: 048
     Dates: start: 2017, end: 20181219
  2. LOXAPAC [Interacting]
     Active Substance: LOXAPINE
     Indication: ANXIETY
     Dosage: 10 GTT, QD
     Route: 048
     Dates: start: 2017, end: 20181219
  3. VESICARE [Concomitant]
     Active Substance: SOLIFENACIN SUCCINATE
     Indication: PRODUCT USED FOR UNKNOWN INDICATION
     Dosage: 1 DF, UNK
     Route: 048
     Dates: end: 20181219
  4. NEBIVOLOL. [Concomitant]
     Active Substance: NEBIVOLOL
     Indication: PRODUCT USED FOR UNKNOWN INDICATION
     Dosage: 2.5 MG, QD
     Route: 048
     Dates: end: 20181219
  5. LEVOTHYROX [Concomitant]
     Active Substance: LEVOTHYROXINE
     Indication: HYPOTHYROIDISM
     Dosage: 1 DF, QD
     Route: 048
  6. PRAZEPAM [Concomitant]
     Active Substance: PRAZEPAM
     Indication: ANXIETY
     Dosage: 10 MG, UNK
     Route: 048
     Dates: start: 2017, end: 20181219

REACTIONS (6)
  - Product use in unapproved indication [Unknown]
  - Extrapyramidal disorder [Recovering/Resolving]
  - Dysphagia [Recovered/Resolved]
  - Respiratory distress [Recovered/Resolved]
  - Drug interaction [Unknown]
  - Cardio-respiratory arrest [Recovered/Resolved]

NARRATIVE: CASE EVENT DATE: 2017
